FAERS Safety Report 21139352 (Version 3)
Quarter: 2022Q3

REPORT INFORMATION
  Report Type: Report from Study
  Country: US (occurrence: None)
  Receive Date: 20220727
  Receipt Date: 20220916
  Transmission Date: 20221026
  Serious: Yes (Hospitalization, Other)
  Sender: FDA-Public Use
  Company Number: US-Eisai Medical Research-EC-2022-119915

PATIENT
  Age: 62 Year
  Sex: Female

DRUGS (2)
  1. LENVIMA [Suspect]
     Active Substance: LENVATINIB
     Indication: Endometrial cancer
     Dosage: MISSED 4 DAYS DUE TO HIGH BP
     Route: 048
     Dates: start: 20220422, end: 202205
  2. LENVIMA [Suspect]
     Active Substance: LENVATINIB
     Route: 048
     Dates: start: 202205, end: 2022

REACTIONS (12)
  - Renal impairment [Unknown]
  - Dehydration [Unknown]
  - Pulmonary oedema [Unknown]
  - Dyspnoea [Unknown]
  - Nausea [Recovered/Resolved with Sequelae]
  - Abdominal pain upper [Unknown]
  - Muscle spasms [Unknown]
  - Protein urine [Unknown]
  - Cystitis [Unknown]
  - Peripheral swelling [Unknown]
  - Vomiting [Unknown]
  - Blood magnesium decreased [Unknown]

NARRATIVE: CASE EVENT DATE: 20220101
